FAERS Safety Report 17389334 (Version 1)
Quarter: 2020Q1

REPORT INFORMATION
  Report Type: Spontaneous
  Country: ZA (occurrence: ZA)
  Receive Date: 20200207
  Receipt Date: 20200207
  Transmission Date: 20200409
  Serious: Yes (Hospitalization)
  Sender: FDA-Public Use
  Company Number: ZA-AMGEN-ZAFSP2020020188

PATIENT
  Age: 78 Year
  Sex: Female

DRUGS (1)
  1. ENBREL [Suspect]
     Active Substance: ETANERCEPT
     Indication: PRODUCT USED FOR UNKNOWN INDICATION
     Dosage: 50 MG, UNK
     Route: 058
     Dates: start: 20200124

REACTIONS (6)
  - Anxiety [Unknown]
  - Hypertension [Unknown]
  - Insomnia [Unknown]
  - Fatigue [Unknown]
  - Mental disorder [Unknown]
  - Malaise [Not Recovered/Not Resolved]
